FAERS Safety Report 18439665 (Version 1)
Quarter: 2020Q4

REPORT INFORMATION
  Report Type: Spontaneous
  Country: ES (occurrence: ES)
  Receive Date: 20201029
  Receipt Date: 20201029
  Transmission Date: 20210114
  Serious: Yes (Hospitalization)
  Sender: FDA-Public Use
  Company Number: NVSC2020ES283545

PATIENT
  Age: 62 Year
  Sex: Female

DRUGS (6)
  1. DIASOL [POTASSIUM CHLORIDE;SODIUM ACETATE;SODIUM CHLORIDE] [Suspect]
     Active Substance: POTASSIUM CHLORIDE\SODIUM ACETATE\SODIUM CHLORIDE
     Indication: TYPE 2 DIABETES MELLITUS
     Dosage: 6 DF, QD
     Route: 048
     Dates: start: 20200605, end: 20200705
  2. OMEPRAZOL [Concomitant]
     Active Substance: OMEPRAZOLE
     Indication: GASTRITIS PROPHYLAXIS
     Dosage: 20 MG, QD
     Route: 048
     Dates: start: 20181001
  3. NAPROXEN. [Suspect]
     Active Substance: NAPROXEN
     Indication: PAIN
     Dosage: 550 MG, Q8H
     Route: 048
     Dates: start: 20200703, end: 20200705
  4. PREGABALINA [Concomitant]
     Active Substance: PREGABALIN
     Indication: FIBROMYALGIA
     Dosage: 75 MG, QD
     Route: 048
     Dates: start: 20180401
  5. SIMVASTATINA [Concomitant]
     Active Substance: SIMVASTATIN
     Indication: DYSLIPIDAEMIA
     Dosage: 20 MG, QD
     Route: 048
     Dates: start: 20180301
  6. AMERIDE [Concomitant]
     Indication: HYPERTENSION
     Dosage: UNK
     Route: 048
     Dates: start: 20180901

REACTIONS (1)
  - Cholestasis [Recovered/Resolved]

NARRATIVE: CASE EVENT DATE: 20200705
